FAERS Safety Report 7442181-1 (Version None)
Quarter: 2011Q2

REPORT INFORMATION
  Report Type: 
  Country: None (occurrence: None)
  Receive Date: 20110428
  Receipt Date: 20110418
  Transmission Date: 20111010
  Serious: Yes (Other)
  Sender: FDA-Public Use
  Company Number: PHHY2011US11758

PATIENT
  Sex: Female

DRUGS (4)
  1. FEMARA [Suspect]
     Dosage: 2.5 MG,
     Route: 048
     Dates: start: 20110126
  2. AMBIEN [Concomitant]
     Dosage: 10 MG, UNK
  3. ATENOLOL [Concomitant]
     Dosage: 25 MG, UNK
     Route: 048
  4. VITAMIN B NOS [Concomitant]

REACTIONS (4)
  - DEPRESSION [None]
  - FATIGUE [None]
  - GENERAL PHYSICAL HEALTH DETERIORATION [None]
  - ARTHRALGIA [None]
